FAERS Safety Report 7413391-4 (Version None)
Quarter: 2011Q2

REPORT INFORMATION
  Report Type: 
  Country: None (occurrence: None)
  Receive Date: 20110413
  Receipt Date: 20110411
  Transmission Date: 20111010
  Serious: Yes (Other)
  Sender: FDA-Public Use
  Company Number: RO-PFIZER INC-2011080062

PATIENT
  Age: 40 Year

DRUGS (1)
  1. SORTIS [Suspect]
     Indication: ISCHAEMIC HEART DISEASE PROPHYLAXIS
     Dosage: 80 MG, UNK

REACTIONS (1)
  - CEREBRAL HAEMORRHAGE [None]
